FAERS Safety Report 6747100-9 (Version None)
Quarter: 2010Q2

REPORT INFORMATION
  Report Type: 
  Country: None (occurrence: None)
  Receive Date: 20100526
  Receipt Date: 20100519
  Transmission Date: 20101027
  Serious: No
  Sender: FDA-Public Use
  Company Number: 2010SP021794

PATIENT
  Sex: Female

DRUGS (9)
  1. REMERON [Suspect]
     Indication: DRUG USE FOR UNKNOWN INDICATION
     Dosage: 7.5 MG; ; PO, 15 MG; ; PO
     Route: 048
  2. SPIROPENT [Concomitant]
  3. FERROMIA [Concomitant]
  4. ONON [Concomitant]
  5. TAKEPRON [Concomitant]
  6. GASMOTIN [Concomitant]
  7. MUCOSIL-10 [Concomitant]
  8. VESICARE [Concomitant]
  9. MAGLAX [Concomitant]

REACTIONS (1)
  - BLOOD POTASSIUM INCREASED [None]
